FAERS Safety Report 5198730-X (Version None)
Quarter: 2007Q1

REPORT INFORMATION
  Report Type: 
  Country: None (occurrence: None)
  Receive Date: 20070104
  Receipt Date: 20061229
  Transmission Date: 20070707
  Serious: Yes (Other)
  Sender: FDA-Public Use
  Company Number: US-GLAXOSMITHKLINE-A0633885A

PATIENT
  Age: 35 Year
  Sex: Female

DRUGS (4)
  1. EPIVIR [Suspect]
     Dosage: 300MG PER DAY
     Route: 048
  2. VIDEX [Concomitant]
     Dosage: 200MG PER DAY
     Route: 048
  3. SUSTIVA [Concomitant]
     Dosage: 600MG PER DAY
     Route: 048
     Dates: end: 20060324
  4. KALETRA [Concomitant]
     Dosage: 6TAB PER DAY
     Route: 048
     Dates: start: 20060324

REACTIONS (1)
  - ABORTION SPONTANEOUS [None]
